FAERS Safety Report 8503617-8 (Version None)
Quarter: 2012Q3

REPORT INFORMATION
  Report Type: 
  Country: None (occurrence: None)
  Receive Date: 20120711
  Receipt Date: 20120706
  Transmission Date: 20120928
  Serious: Yes (Other)
  Sender: FDA-Public Use
  Company Number: PHHY2012CA059258

PATIENT
  Sex: Female

DRUGS (1)
  1. CLOZARIL [Suspect]
     Dosage: UNK
     Dates: start: 20120620, end: 20120703

REACTIONS (3)
  - SPEECH DISORDER [None]
  - SALIVARY HYPERSECRETION [None]
  - DIZZINESS [None]
